FAERS Safety Report 5358460-8 (Version None)
Quarter: 2007Q2

REPORT INFORMATION
  Report Type: 
  Country: None (occurrence: None)
  Receive Date: 20070601
  Receipt Date: 20070418
  Transmission Date: 20071010
  Serious: No
  Sender: FDA-Public Use
  Company Number: PHEH2007US02898

PATIENT
  Sex: Male

DRUGS (2)
  1. ENABLEX [Suspect]
     Indication: HYPERTONIC BLADDER
     Dosage: 7.5 MG : 15 MG : QD; ORAL
     Route: 048
     Dates: start: 20070101, end: 20070101
  2. ENABLEX [Suspect]
     Indication: HYPERTONIC BLADDER
     Dosage: 7.5 MG : 15 MG : QD; ORAL
     Route: 048
     Dates: start: 20070404

REACTIONS (3)
  - CONDITION AGGRAVATED [None]
  - DRUG INEFFECTIVE [None]
  - POLLAKIURIA [None]
